FAERS Safety Report 8006583-7 (Version None)
Quarter: 2011Q4

REPORT INFORMATION
  Report Type: 
  Country: None (occurrence: None)
  Receive Date: 20111227
  Receipt Date: 20111214
  Transmission Date: 20120403
  Serious: Yes (Hospitalization, Other)
  Sender: FDA-Public Use
  Company Number: JP-ELI_LILLY_AND_COMPANY-JP201112003938

PATIENT
  Age: 8 Year
  Sex: Female

DRUGS (3)
  1. STRATTERA [Suspect]
     Indication: ATTENTION DEFICIT/HYPERACTIVITY DISORDER
     Dosage: 5 MG, BID
     Route: 048
     Dates: start: 20110202, end: 20110222
  2. STRATTERA [Suspect]
     Dosage: 10 MG, TID
     Route: 048
     Dates: start: 20111026, end: 20111205
  3. STRATTERA [Suspect]
     Dosage: 10 MG, BID
     Route: 048
     Dates: start: 20110223, end: 20111025

REACTIONS (2)
  - LUPUS-LIKE SYNDROME [None]
  - LUPUS NEPHRITIS [None]
